FAERS Safety Report 19786560 (Version 2)
Quarter: 2021Q4

REPORT INFORMATION
  Report Type: Spontaneous
  Country: CA (occurrence: CA)
  Receive Date: 20210903
  Receipt Date: 20211019
  Transmission Date: 20220303
  Serious: No
  Sender: FDA-Public Use
  Company Number: CA-PFIZER INC-202101035285

PATIENT

DRUGS (2)
  1. FRAGMIN [Suspect]
     Active Substance: DALTEPARIN SODIUM
     Dosage: 10000IU/0.4 ML/0.4 ML SYR
  2. FRAGMIN [Suspect]
     Active Substance: DALTEPARIN SODIUM
     Dosage: 25000 IU/ML

REACTIONS (2)
  - Needle issue [Unknown]
  - Device issue [Unknown]
